FAERS Safety Report 5784332-0 (Version None)
Quarter: 2008Q2

REPORT INFORMATION
  Report Type: 
  Country: None (occurrence: None)
  Receive Date: 20080624
  Receipt Date: 20070418
  Transmission Date: 20081010
  Serious: No
  Sender: FDA-Public Use
  Company Number: US-ASTRAZENECA-2007UW07577

PATIENT
  Age: 70 Year
  Sex: Female
  Weight: 63.5 kg

DRUGS (9)
  1. PULMICORT RESPULES [Suspect]
     Indication: ASTHMA
     Route: 055
     Dates: start: 20070301
  2. ALBUTEROL [Concomitant]
  3. PLAVIX [Concomitant]
  4. IMDUR [Concomitant]
  5. ZETIA [Concomitant]
  6. ZEBETEA [Concomitant]
  7. ASPIRIN [Concomitant]
  8. ZYRTEC [Concomitant]
  9. NITROGLYCERIN [Concomitant]

REACTIONS (1)
  - CHEST DISCOMFORT [None]
